FAERS Safety Report 9865523 (Version 2)
Quarter: 2014Q1

REPORT INFORMATION
  Report Type: Spontaneous
  Country: US (occurrence: US)
  Receive Date: 20140203
  Receipt Date: 20140203
  Transmission Date: 20141002
  Serious: No
  Sender: FDA-Public Use
  Company Number: US-ALLERGAN-1309537US

PATIENT
  Age: 74 Year
  Sex: Female

DRUGS (6)
  1. RESTASIS [Suspect]
     Indication: OCULAR HYPERAEMIA
     Dosage: 2 GTT, BID
     Route: 047
     Dates: start: 20130625, end: 20130701
  2. RESTASIS [Suspect]
     Indication: BLEPHARITIS
  3. RESTASIS [Suspect]
     Indication: DRY EYE
  4. ARMOUR THYROID [Concomitant]
     Indication: HYPOTHYROIDISM
     Dosage: UNK
  5. BLINK                              /00582501/ [Concomitant]
     Indication: PRODUCT USED FOR UNKNOWN INDICATION
     Dosage: UNK UNK, PRN
     Route: 047
  6. PREDNISONE EYE DROPS NOS [Concomitant]
     Indication: PRODUCT USED FOR UNKNOWN INDICATION
     Route: 047

REACTIONS (5)
  - Blepharitis [Unknown]
  - Sebaceous gland disorder [Unknown]
  - Inflammation [Unknown]
  - Eye irritation [Unknown]
  - Ocular hyperaemia [Not Recovered/Not Resolved]
